FAERS Safety Report 18581333 (Version 1)
Quarter: 2020Q4

REPORT INFORMATION
  Report Type: Spontaneous
  Country: CN (occurrence: CN)
  Receive Date: 20201204
  Receipt Date: 20201204
  Transmission Date: 20210114
  Serious: Yes (Hospitalization)
  Sender: FDA-Public Use
  Company Number: CN-BAYER-2020-261796

PATIENT
  Age: 74 Year
  Sex: Male
  Weight: 42 kg

DRUGS (1)
  1. STIVARGA [Suspect]
     Active Substance: REGORAFENIB
     Indication: COLON CANCER
     Dosage: 80 MG, QD
     Route: 048
     Dates: start: 20201014, end: 20201030

REACTIONS (5)
  - Abdominal pain [Recovering/Resolving]
  - Chest discomfort [Recovering/Resolving]
  - Abdominal distension [Recovering/Resolving]
  - Palpitations [Recovering/Resolving]
  - Off label use [None]

NARRATIVE: CASE EVENT DATE: 20201014
